FAERS Safety Report 6516884-7 (Version None)
Quarter: 2009Q4

REPORT INFORMATION
  Report Type: 
  Country: None (occurrence: None)
  Receive Date: 20091223
  Receipt Date: 20091216
  Transmission Date: 20100525
  Serious: Yes (Other)
  Sender: FDA-Public Use
  Company Number: GB-TEVA-218762ISR

PATIENT
  Age: 82 Year
  Sex: Female

DRUGS (2)
  1. WARFARIN [Suspect]
  2. COVONIA BRONCHIAL [Suspect]
     Route: 048

REACTIONS (2)
  - DRUG INTERACTION [None]
  - INTERNATIONAL NORMALISED RATIO INCREASED [None]
